FAERS Safety Report 4301493-0 (Version None)
Quarter: 2004Q1

REPORT INFORMATION
  Report Type: 
  Country: None (occurrence: None)
  Receive Date: 20040219
  Receipt Date: 20040209
  Transmission Date: 20041129
  Serious: Yes (Other)
  Sender: FDA-Public Use
  Company Number: ZONI001308

PATIENT
  Age: 30 Year
  Sex: Female

DRUGS (1)
  1. ZONEGRAN [Suspect]
     Indication: CONVULSION
     Dosage: 400 MG DAILY ORAL
     Route: 048
     Dates: start: 20031201, end: 20031201

REACTIONS (6)
  - APHASIA [None]
  - ASTHENIA [None]
  - CONVERSION DISORDER [None]
  - CONVULSION [None]
  - DYSPHEMIA [None]
  - INCREASED TENDENCY TO BRUISE [None]
